FAERS Safety Report 18620849 (Version 8)
Quarter: 2021Q1

REPORT INFORMATION
  Report Type: Spontaneous
  Country: GB (occurrence: GB)
  Receive Date: 20201216
  Receipt Date: 20210218
  Transmission Date: 20210419
  Serious: Yes (Other)
  Sender: FDA-Public Use
  Company Number: GB-SUN PHARMACEUTICAL INDUSTRIES LTD-2020RR-271381

PATIENT
  Sex: Male

DRUGS (2)
  1. CIPROFLOXACIN. [Suspect]
     Active Substance: CIPROFLOXACIN
     Indication: ORCHITIS
     Dosage: UNK
     Route: 065
  2. MACROBID [Suspect]
     Active Substance: NITROFURANTOIN\NITROFURANTOIN MONOHYDRATE
     Indication: PROPHYLAXIS URINARY TRACT INFECTION
     Dosage: UNK
     Route: 065
     Dates: start: 2015, end: 2019

REACTIONS (8)
  - Anal incontinence [Unknown]
  - Drug ineffective [Unknown]
  - Micturition urgency [Unknown]
  - Urinary incontinence [Unknown]
  - Urinary retention [Unknown]
  - Oxidative stress [Unknown]
  - Muscular weakness [Unknown]
  - Defaecation urgency [Unknown]
